FAERS Safety Report 9151897 (Version 1)
Quarter: 2013Q1

REPORT INFORMATION
  Report Type: Spontaneous
  Country: US (occurrence: US)
  Receive Date: 20130308
  Receipt Date: 20130308
  Transmission Date: 20140127
  Serious: No
  Sender: FDA-Public Use
  Company Number: US-GLAXOSMITHKLINE-A0999902A

PATIENT
  Age: 82 Year
  Sex: Female

DRUGS (4)
  1. TARGET ORIGINAL 2MG [Suspect]
     Indication: NICOTINE DEPENDENCE
  2. TARGET ORIGINAL 4MG [Suspect]
     Indication: NICOTINE DEPENDENCE
  3. NICORETTE [Suspect]
     Indication: NICOTINE DEPENDENCE
  4. EQUATE NICOTINE [Suspect]
     Indication: NICOTINE DEPENDENCE

REACTIONS (2)
  - Intentional drug misuse [Not Recovered/Not Resolved]
  - Dizziness [Recovered/Resolved]
